FAERS Safety Report 24534091 (Version 6)
Quarter: 2025Q1

REPORT INFORMATION
  Report Type: Report from Study
  Country: CA (occurrence: CA)
  Receive Date: 20241022
  Receipt Date: 20250306
  Transmission Date: 20250408
  Serious: Yes (Hospitalization, Other)
  Sender: JOHNSON AND JOHNSON
  Company Number: CA-JNJFOC-20240279095

PATIENT
  Age: 43 Year
  Sex: Female
  Weight: 80 kg

DRUGS (5)
  1. REMICADE [Suspect]
     Active Substance: INFLIXIMAB
     Indication: Colitis ulcerative
     Route: 041
     Dates: start: 20240210
  2. REMICADE [Suspect]
     Active Substance: INFLIXIMAB
     Route: 041
     Dates: start: 20240719
  3. REMICADE [Suspect]
     Active Substance: INFLIXIMAB
     Route: 041
     Dates: start: 20240210
  4. REMICADE [Suspect]
     Active Substance: INFLIXIMAB
     Route: 041
  5. REMICADE [Suspect]
     Active Substance: INFLIXIMAB
     Route: 041

REACTIONS (22)
  - Hospitalisation [Unknown]
  - Haemoglobin decreased [Unknown]
  - Colitis ulcerative [Not Recovered/Not Resolved]
  - Spinal fracture [Unknown]
  - Drug ineffective [Unknown]
  - Fatigue [Recovered/Resolved]
  - Pain [Recovering/Resolving]
  - Sleep disorder [Recovering/Resolving]
  - Periorbital swelling [Unknown]
  - Swelling face [Recovered/Resolved]
  - Asthenia [Recovering/Resolving]
  - Weight decreased [Unknown]
  - Abdominal pain [Recovering/Resolving]
  - Mucous stools [Recovering/Resolving]
  - Brain fog [Recovered/Resolved]
  - Arthralgia [Not Recovered/Not Resolved]
  - Malaise [Unknown]
  - Alopecia [Recovering/Resolving]
  - Headache [Unknown]
  - Faecal calprotectin increased [Unknown]
  - Off label use [Unknown]
  - COVID-19 [Unknown]

NARRATIVE: CASE EVENT DATE: 20240201
